FAERS Safety Report 14798238 (Version 1)
Quarter: 2018Q2

REPORT INFORMATION
  Report Type: Spontaneous
  Country: SE (occurrence: SE)
  Receive Date: 20180424
  Receipt Date: 20180424
  Transmission Date: 20180711
  Serious: Yes (Hospitalization)
  Sender: FDA-Public Use
  Company Number: SE-TEVA-2018-SE-883661

PATIENT
  Age: 69 Year
  Sex: Female

DRUGS (1)
  1. ALENAT [Suspect]
     Active Substance: ALENDRONATE SODIUM
     Route: 065
     Dates: start: 20160429

REACTIONS (1)
  - Femoral neck fracture [Not Recovered/Not Resolved]

NARRATIVE: CASE EVENT DATE: 20180221
